FAERS Safety Report 18438779 (Version 1)
Quarter: 2020Q4

REPORT INFORMATION
  Report Type: Spontaneous
  Country: US (occurrence: US)
  Receive Date: 20201029
  Receipt Date: 20201029
  Transmission Date: 20210114
  Serious: Yes (Other)
  Sender: FDA-Public Use
  Company Number: US-DRREDDYS-USA/USA/20/0128502

PATIENT
  Age: 77 Year
  Sex: Male

DRUGS (2)
  1. TADALAFIL TABLETS [Suspect]
     Active Substance: TADALAFIL
     Indication: URINARY RETENTION
     Route: 065
  2. TADALAFIL TABLETS [Suspect]
     Active Substance: TADALAFIL
     Indication: SEXUAL DYSFUNCTION

REACTIONS (2)
  - Cerebral haemorrhage [Unknown]
  - Medication error [Unknown]
